FAERS Safety Report 17067034 (Version 1)
Quarter: 2019Q4

REPORT INFORMATION
  Report Type: Report from Study
  Country: MX (occurrence: MX)
  Receive Date: 20191122
  Receipt Date: 20191122
  Transmission Date: 20200122
  Serious: Yes (Other)
  Sender: FDA-Public Use
  Company Number: NVSC2019MX043922

PATIENT
  Sex: Male
  Weight: 96 kg

DRUGS (1)
  1. GALVUS MET [Suspect]
     Active Substance: METFORMIN HYDROCHLORIDE\VILDAGLIPTIN
     Indication: DIABETES MELLITUS
     Dosage: 1 DF, BID (850 MG METFORMIN, 50 MG VILDAGLIPTIN) (MORE THAN A YEAR AGO)
     Route: 048

REACTIONS (1)
  - Atrioventricular block [Unknown]
